FAERS Safety Report 5378281-X (Version None)
Quarter: 2007Q3

REPORT INFORMATION
  Report Type: 
  Country: None (occurrence: None)
  Receive Date: 20070705
  Receipt Date: 20070626
  Transmission Date: 20080115
  Serious: Yes (Other)
  Sender: FDA-Public Use
  Company Number: FR-ELI_LILLY_AND_COMPANY-FR200706006477

PATIENT
  Age: 27 Year
  Sex: Male

DRUGS (2)
  1. ZYPREXA [Suspect]
     Indication: BRIEF PSYCHOTIC DISORDER WITH MARKED STRESSORS
     Dosage: 20 MG, DAILY (1/D)
     Route: 048
     Dates: start: 20070601, end: 20070601
  2. BENZODIAZEPINE DERIVATIVES [Concomitant]
     Indication: BRIEF PSYCHOTIC DISORDER WITH MARKED STRESSORS
     Dosage: UNK, UNKNOWN
     Route: 065

REACTIONS (1)
  - EXTRASYSTOLES [None]
